FAERS Safety Report 8493050-X (Version None)
Quarter: 2012Q3

REPORT INFORMATION
  Report Type: 
  Country: None (occurrence: None)
  Receive Date: 20120706
  Receipt Date: 20120705
  Transmission Date: 20120928
  Serious: Yes (Hospitalization)
  Sender: FDA-Public Use
  Company Number: CH-ROCHE-1084480

PATIENT
  Age: 75 Year
  Sex: Female

DRUGS (2)
  1. METHOTREXATE [Suspect]
     Indication: TEMPORAL ARTERITIS
  2. ACTEMRA [Suspect]
     Indication: TEMPORAL ARTERITIS
     Route: 042

REACTIONS (1)
  - ALVEOLITIS [None]
